FAERS Safety Report 8760583 (Version 1)
Quarter: 2012Q4

REPORT INFORMATION
  Report Type: 
  Country: US (occurrence: None)
  Receive Date: 20120829
  Receipt Date: 20120829
  Transmission Date: 20130627
  Serious: Yes (Hospitalization)
  Sender: FDA-Public Use
  Company Number: None

PATIENT
  Sex: Male
  Weight: 60.78 kg

DRUGS (2)
  1. CARBOPLATIN [Suspect]
     Dates: end: 20120730
  2. DOCETAXEL (TAXOTERE) [Suspect]
     Dates: end: 20120730

REACTIONS (2)
  - Cellulitis [None]
  - Device dislocation [None]
